FAERS Safety Report 9587208 (Version 2)
Quarter: 2013Q4

REPORT INFORMATION
  Report Type: Spontaneous
  Country: US (occurrence: US)
  Receive Date: 20131003
  Receipt Date: 20131216
  Transmission Date: 20140711
  Serious: Yes (Hospitalization, Other)
  Sender: FDA-Public Use
  Company Number: US-GLAXOSMITHKLINE-A1043971A

PATIENT
  Age: 84 Year
  Sex: Male
  Weight: 78.2 kg

DRUGS (14)
  1. ADVAIR [Suspect]
     Indication: PRODUCT USED FOR UNKNOWN INDICATION
     Route: 055
     Dates: start: 20100928
  2. DOXYCYCLINE [Concomitant]
  3. DYAZIDE [Concomitant]
  4. FISH OIL [Concomitant]
  5. LISINOPRIL [Concomitant]
  6. METFORMIN [Concomitant]
  7. METRONIDAZOLE [Concomitant]
  8. MULTIVITAMIN [Concomitant]
  9. OMEPRAZOLE [Concomitant]
  10. OXYBUTYNIN [Concomitant]
  11. PROSCAR [Concomitant]
  12. SIMVASTATIN [Concomitant]
  13. TERAZOSIN [Concomitant]
  14. ULTRAM [Concomitant]

REACTIONS (1)
  - Cerebrovascular accident [Recovering/Resolving]
